FAERS Safety Report 10258504 (Version 1)
Quarter: 2014Q2

REPORT INFORMATION
  Report Type: Spontaneous
  Country: GB (occurrence: GB)
  Receive Date: 20140625
  Receipt Date: 20140625
  Transmission Date: 20141212
  Serious: Yes (Death)
  Sender: FDA-Public Use
  Company Number: GB-PFIZER INC-2014174221

PATIENT
  Sex: Male

DRUGS (1)
  1. PREGABALIN [Suspect]
     Indication: PARAESTHESIA

REACTIONS (2)
  - Death [Fatal]
  - Drug ineffective [Unknown]
